FAERS Safety Report 11343934 (Version 1)
Quarter: 2015Q3

REPORT INFORMATION
  Report Type: Spontaneous
  Country: US (occurrence: US)
  Receive Date: 20150806
  Receipt Date: 20150806
  Transmission Date: 20151125
  Serious: No
  Sender: FDA-Public Use
  Company Number: US-PFIZER INC-2015252022

PATIENT
  Age: 55 Year
  Sex: Female

DRUGS (1)
  1. ATORVASTATIN CALCIUM. [Suspect]
     Active Substance: ATORVASTATIN CALCIUM
     Dosage: 20 MG, 1X/DAY

REACTIONS (7)
  - Musculoskeletal pain [Unknown]
  - Blood potassium increased [Unknown]
  - Dry mouth [Unknown]
  - Pharyngeal ulceration [Unknown]
  - Drug ineffective [Unknown]
  - Arthralgia [Unknown]
  - Blood sodium increased [Unknown]
